FAERS Safety Report 5286908-6 (Version None)
Quarter: 2007Q2

REPORT INFORMATION
  Report Type: 
  Country: None (occurrence: None)
  Receive Date: 20070404
  Receipt Date: 20070326
  Transmission Date: 20071010
  Serious: Yes (Hospitalization)
  Sender: FDA-Public Use
  Company Number: US-BAXTER-2007BH001566

PATIENT
  Age: 65 Year
  Sex: Male
  Weight: 108 kg

DRUGS (14)
  1. DIANEAL [Suspect]
     Indication: RENAL FAILURE CHRONIC
     Route: 033
  2. DIANEAL [Suspect]
     Indication: PERITONEAL DIALYSIS
     Route: 033
  3. TRANXENE [Concomitant]
     Indication: DRUG USE FOR UNKNOWN INDICATION
     Route: 048
  4. LANTUS [Concomitant]
     Indication: DRUG USE FOR UNKNOWN INDICATION
     Route: 065
  5. ALBUTEROL [Concomitant]
     Indication: DRUG USE FOR UNKNOWN INDICATION
     Dosage: DOSE UNIT:UNKNOWN
     Route: 055
  6. SENNA [Concomitant]
     Indication: DRUG USE FOR UNKNOWN INDICATION
     Dosage: DOSE UNIT:UNKNOWN
     Route: 065
  7. TOPROL-XL [Concomitant]
     Indication: DRUG USE FOR UNKNOWN INDICATION
     Route: 065
  8. LEVOTHYROXINE SODIUM [Concomitant]
     Indication: DRUG USE FOR UNKNOWN INDICATION
     Route: 065
  9. ATARAX [Concomitant]
     Indication: DRUG USE FOR UNKNOWN INDICATION
     Route: 065
  10. TUMS [Concomitant]
     Indication: DRUG USE FOR UNKNOWN INDICATION
     Dosage: DOSE UNIT:UNKNOWN
     Route: 048
  11. DOXEPIN HCL [Concomitant]
     Indication: DRUG USE FOR UNKNOWN INDICATION
     Route: 065
  12. NEPHRO-VITE RX [Concomitant]
     Indication: DRUG USE FOR UNKNOWN INDICATION
     Dosage: DOSE UNIT:UNKNOWN
     Route: 065
  13. ASPIRIN [Concomitant]
     Indication: DRUG USE FOR UNKNOWN INDICATION
     Dosage: DOSE UNIT:UNKNOWN
     Route: 065
  14. CAPOTEN [Concomitant]
     Indication: DRUG USE FOR UNKNOWN INDICATION
     Route: 065

REACTIONS (3)
  - CLOSTRIDIUM DIFFICILE COLITIS [None]
  - GENERALISED OEDEMA [None]
  - PYREXIA [None]
